FAERS Safety Report 11725499 (Version 1)
Quarter: 2015Q4

REPORT INFORMATION
  Report Type: Spontaneous
  Country: US (occurrence: US)
  Receive Date: 20151110
  Receipt Date: 20151110
  Transmission Date: 20160304
  Serious: No
  Sender: FDA-Public Use
  Company Number: US-ELI_LILLY_AND_COMPANY-US201110000240

PATIENT
  Sex: Female

DRUGS (1)
  1. FORTEO [Suspect]
     Active Substance: TERIPARATIDE
     Dosage: UNK
     Route: 058
     Dates: start: 201006

REACTIONS (8)
  - Fatigue [Recovered/Resolved]
  - Depression [Recovered/Resolved]
  - Cough [Recovered/Resolved]
  - Constipation [Recovered/Resolved]
  - Blood creatine increased [Recovered/Resolved]
  - Blood urea increased [Recovered/Resolved]
  - Oedema [Recovered/Resolved]
  - Blood calcium increased [Recovered/Resolved]
